FAERS Safety Report 20527594 (Version 1)
Quarter: 2022Q1

REPORT INFORMATION
  Report Type: Spontaneous
  Country: NL (occurrence: NL)
  Receive Date: 20220228
  Receipt Date: 20220228
  Transmission Date: 20220424
  Serious: Yes (Other)
  Sender: FDA-Public Use
  Company Number: NL-CELLTRION HEALTHCARE HUNGARY KFT-2022NL000302

PATIENT

DRUGS (5)
  1. DOCETAXEL [Suspect]
     Active Substance: DOCETAXEL
     Indication: HER2 positive salivary gland cancer
     Dosage: 75 MILLIGRAM/SQ. METER (75 MG/M2 (6 DOSAGES) EVERY 3 WEEKS)
  2. TRASTUZUMAB [Suspect]
     Active Substance: TRASTUZUMAB
     Indication: HER2 positive salivary gland cancer
     Dosage: EITHER INTRAVENOUSLY (I.V., STARTING DOSE 8 MG/KG, WITH SUBSEQUENT DOSAGES OF 6 MG/KG) OR SUBCUTANEO
  3. PERTUZUMAB [Suspect]
     Active Substance: PERTUZUMAB
     Indication: HER2 positive salivary gland cancer
     Dosage: 840 MILLIGRAM (840 MG (STARTING DOSE) ADMINSTERED EVERY 3 WEEKS SUBSEQUENTLY)
     Route: 042
  4. PERTUZUMAB [Suspect]
     Active Substance: PERTUZUMAB
     Dosage: 420 MILLIGRAM (420 MG (SUBSEQUENT DOSAGES) ADMINISTERED EVERY 3 WEEKS)
  5. ADO-TRASTUZUMAB EMTANSINE [Suspect]
     Active Substance: ADO-TRASTUZUMAB EMTANSINE
     Indication: HER2 positive salivary gland cancer
     Dosage: 3.6 MILLIGRAM/KILOGRAM (3.6 MG/KG EVERY 3 WEEKS)
     Route: 042

REACTIONS (4)
  - Disease progression [Unknown]
  - HER2 positive salivary gland cancer [Unknown]
  - Therapy partial responder [Unknown]
  - Off label use [Unknown]
